FAERS Safety Report 16853616 (Version 17)
Quarter: 2021Q2

REPORT INFORMATION
  Report Type: Report from Study
  Country: None (occurrence: FR)
  Receive Date: 20190926
  Receipt Date: 20210527
  Transmission Date: 20210716
  Serious: Yes (Congenital Anomaly, Other)
  Sender: FDA-Public Use
  Company Number: FR-ABBVIE-19K-056-2935895-00

PATIENT
  Sex: Male
  Weight: 3.23 kg

DRUGS (18)
  1. ZIDOVUDINE. [Suspect]
     Active Substance: ZIDOVUDINE
     Dosage: COURSE NUMBER 2
     Route: 064
  2. RITONAVIR. [Suspect]
     Active Substance: RITONAVIR
     Dosage: COURSE NUMBER 1
     Route: 064
  3. KALETRA [Suspect]
     Active Substance: LOPINAVIR\RITONAVIR
     Indication: MATERNAL EXPOSURE TIMING UNSPECIFIED
     Dosage: COURSE NUMBER 1
     Route: 064
     Dates: start: 20070510
  4. ZIDOVUDINE. [Suspect]
     Active Substance: ZIDOVUDINE
     Indication: MATERNAL EXPOSURE TIMING UNSPECIFIED
     Dosage: COURSE NUMBER 1
     Route: 064
     Dates: start: 20070521
  5. VIRACEPT [Suspect]
     Active Substance: NELFINAVIR MESYLATE
     Indication: MATERNAL EXPOSURE TIMING UNSPECIFIED
     Dosage: COURSE NUMBER 1
     Route: 064
     Dates: start: 20070512, end: 20070512
  6. STOCRIN [Suspect]
     Active Substance: EFAVIRENZ
     Indication: MATERNAL EXPOSURE TIMING UNSPECIFIED
     Dosage: COURSE NUMBER 1
     Route: 064
     Dates: start: 20070403, end: 20070510
  7. ALUVIA [Suspect]
     Active Substance: LOPINAVIR\RITONAVIR
     Indication: MATERNAL EXPOSURE TIMING UNSPECIFIED
     Dosage: COURSE NUMBER 1
     Route: 064
     Dates: start: 20070510
  8. ZEFFIX [Suspect]
     Active Substance: LAMIVUDINE
     Indication: MATERNAL EXPOSURE TIMING UNSPECIFIED
     Dosage: COURSE NUMBER 1
     Route: 064
     Dates: start: 20070512
  9. LAMIVUDINE. [Suspect]
     Active Substance: LAMIVUDINE
     Indication: MATERNAL EXPOSURE TIMING UNSPECIFIED
     Dosage: COURSE NUMBER 1
     Route: 064
     Dates: start: 20070512
  10. LAMIVUDINE. [Suspect]
     Active Substance: LAMIVUDINE
     Dosage: COURSE NUMBER 2
     Route: 064
  11. EPIVIR [Suspect]
     Active Substance: LAMIVUDINE
     Indication: MATERNAL EXPOSURE TIMING UNSPECIFIED
     Dosage: COURSE NUMBER 1
     Route: 064
     Dates: start: 20070512
  12. RITONAVIR. [Suspect]
     Active Substance: RITONAVIR
     Indication: MATERNAL EXPOSURE TIMING UNSPECIFIED
     Dosage: UNK
     Route: 064
     Dates: start: 20070510, end: 200705
  13. RITONAVIR. [Suspect]
     Active Substance: RITONAVIR
     Dosage: UNK
     Route: 064
     Dates: start: 20070512
  14. LOPINAVIR [Suspect]
     Active Substance: LOPINAVIR
     Indication: MATERNAL EXPOSURE TIMING UNSPECIFIED
     Route: 064
     Dates: start: 20170510
  15. TENOFOVIR DISOPROXIL FUMARATE. [Suspect]
     Active Substance: TENOFOVIR DISOPROXIL FUMARATE
     Indication: MATERNAL EXPOSURE TIMING UNSPECIFIED
     Dosage: COURSE NUMBER 1
     Route: 064
     Dates: start: 20070403, end: 20070521
  16. EFAVIRENZ. [Suspect]
     Active Substance: EFAVIRENZ
     Indication: MATERNAL EXPOSURE TIMING UNSPECIFIED
     Dosage: COURSE NUMBER 2
     Route: 064
  17. EMTRICITABINE [Suspect]
     Active Substance: EMTRICITABINE
     Indication: MATERNAL EXPOSURE TIMING UNSPECIFIED
     Dosage: DOSAGE UNIT: TAB/CAPS, COURSE NUMBER: 1
     Route: 064
     Dates: start: 20070403, end: 20070521
  18. RETROVIR [Suspect]
     Active Substance: ZIDOVUDINE
     Indication: MATERNAL EXPOSURE TIMING UNSPECIFIED
     Dosage: COURSE NUMBER 1
     Route: 064
     Dates: start: 20070521

REACTIONS (2)
  - Hydrocele [Unknown]
  - Foetal exposure during pregnancy [Unknown]
